FAERS Safety Report 19693734 (Version 1)
Quarter: 2021Q3

REPORT INFORMATION
  Report Type: Report from Study
  Country: US (occurrence: US)
  Receive Date: 20210813
  Receipt Date: 20210813
  Transmission Date: 20211014
  Serious: Yes (Other)
  Sender: FDA-Public Use
  Company Number: US-BAUSCH-BL-2019-020331

PATIENT
  Age: 74 Year
  Sex: Female
  Weight: 62.2 kg

DRUGS (9)
  1. ACIPHEX [Concomitant]
     Active Substance: RABEPRAZOLE SODIUM
     Indication: GASTRIC PH DECREASED
     Dosage: ALMOST FROM 22 YEARS
  2. GAS?X [Concomitant]
     Active Substance: DIMETHICONE
     Indication: PRODUCT USED FOR UNKNOWN INDICATION
  3. MESALAMINE. [Concomitant]
     Active Substance: MESALAMINE
     Indication: COLITIS ULCERATIVE
     Dosage: STRENGTH: 4G/60ML
     Route: 054
  4. APRISO [Suspect]
     Active Substance: MESALAMINE
     Dosage: 2 CAPSULES EVERY OTHER DAY; SAMPLES
     Route: 048
  5. ANTACID [Concomitant]
     Active Substance: ALUMINUM HYDROXIDE\CALCIUM CARBONATE\DIMETHICONE\MAGNESIUM HYDROXIDE
     Indication: PRODUCT USED FOR UNKNOWN INDICATION
  6. APRISO [Suspect]
     Active Substance: MESALAMINE
     Route: 048
  7. CANASA [Concomitant]
     Active Substance: MESALAMINE
     Indication: COLITIS ULCERATIVE
     Dosage: NIGHT SUPPOSITORIES
  8. APRISO [Suspect]
     Active Substance: MESALAMINE
     Indication: COLITIS ULCERATIVE
     Dosage: FOR ALMOST 15 YEARS 4 CAPSULES 1 TIME IN A DAY
     Route: 048
  9. PROTONIX [Concomitant]
     Active Substance: PANTOPRAZOLE SODIUM
     Indication: GASTRIC PH DECREASED

REACTIONS (9)
  - Sleep disorder [Unknown]
  - Dyspepsia [Unknown]
  - Therapy interrupted [Unknown]
  - Depression [Not Recovered/Not Resolved]
  - Haemorrhage [Recovered/Resolved]
  - Intentional product use issue [Unknown]
  - Gastric disorder [Not Recovered/Not Resolved]
  - Lymphoedema [Not Recovered/Not Resolved]
  - Knee arthroplasty [Unknown]

NARRATIVE: CASE EVENT DATE: 2013
